FAERS Safety Report 9741886 (Version 3)
Quarter: 2014Q1

REPORT INFORMATION
  Report Type: Report from Study
  Country: AU (occurrence: AU)
  Receive Date: 20131210
  Receipt Date: 20140101
  Transmission Date: 20141002
  Serious: Yes (Other)
  Sender: FDA-Public Use
  Company Number: PHHY2013AU140925

PATIENT
  Age: 34 Year
  Sex: Male

DRUGS (5)
  1. CLOZARIL [Suspect]
     Indication: PSYCHOTIC DISORDER
     Dosage: 425 MG, NOCTE
     Route: 048
     Dates: start: 20060411, end: 20131127
  2. FLUOXETINE [Concomitant]
     Dosage: UNK UKN, UNK
  3. AMISULPRIDE [Concomitant]
     Dosage: UNK UKN, UNK
  4. ATENOLOL [Concomitant]
     Dosage: UNK UKN, UNK
  5. DOCUSATE SODIUM\SENNOSIDES [Concomitant]
     Dosage: UNK UKN, UNK

REACTIONS (9)
  - Oropharyngeal pain [Recovered/Resolved]
  - Microcytic anaemia [Recovering/Resolving]
  - Haemoglobin decreased [Recovering/Resolving]
  - Mean cell haemoglobin decreased [Unknown]
  - Mean cell volume decreased [Unknown]
  - Psychotic disorder [Unknown]
  - Neutrophil count decreased [Recovered/Resolved]
  - White blood cell count decreased [Recovered/Resolved]
  - Antipsychotic drug level decreased [Recovered/Resolved]
